FAERS Safety Report 8799087 (Version 3)
Quarter: 2014Q3

REPORT INFORMATION
  Report Type: Spontaneous
  Country: US (occurrence: US)
  Receive Date: 20120920
  Receipt Date: 20140924
  Transmission Date: 20150326
  Serious: No
  Sender: FDA-Public Use
  Company Number: US-ASTRAZENECA-2011SE62789

PATIENT
  Age: 63 Year
  Sex: Female
  Weight: 62.1 kg

DRUGS (13)
  1. HYDROCHLOROTHIAZIDE. [Suspect]
     Active Substance: HYDROCHLOROTHIAZIDE
     Route: 048
  2. HYDROCHLOROTHIAZIDE. [Suspect]
     Active Substance: HYDROCHLOROTHIAZIDE
     Route: 048
  3. ZESTRIL [Suspect]
     Active Substance: LISINOPRIL
     Route: 048
  4. ENTOCORT EC [Suspect]
     Active Substance: BUDESONIDE
     Indication: COLITIS MICROSCOPIC
     Route: 048
     Dates: start: 20130909
  5. OTHER LIPID MODIFYIG AGENTS [Concomitant]
  6. ZESTRIL [Suspect]
     Active Substance: LISINOPRIL
     Route: 048
  7. HYDROCHLOROTHIAZIDE. [Suspect]
     Active Substance: HYDROCHLOROTHIAZIDE
     Route: 048
  8. PLAVIX [Suspect]
     Active Substance: CLOPIDOGREL BISULFATE
     Indication: TRANSIENT ISCHAEMIC ATTACK
     Route: 048
     Dates: start: 20110526
  9. NORVASC [Suspect]
     Active Substance: AMLODIPINE BESYLATE
     Route: 065
     Dates: end: 2011
  10. METFORMIN [Concomitant]
     Active Substance: METFORMIN HYDROCHLORIDE
  11. HYDROCHLOROTHIAZIDE. [Suspect]
     Active Substance: HYDROCHLOROTHIAZIDE
     Route: 048
  12. ZESTRIL [Suspect]
     Active Substance: LISINOPRIL
     Route: 048
  13. PLAVIX [Suspect]
     Active Substance: CLOPIDOGREL BISULFATE
     Indication: MIGRAINE WITH AURA
     Route: 048
     Dates: start: 20110526

REACTIONS (13)
  - Local swelling [Unknown]
  - Adverse reaction [Unknown]
  - Contusion [Unknown]
  - Swelling face [Unknown]
  - Pain [Unknown]
  - Pharyngeal oedema [Not Recovered/Not Resolved]
  - Off label use [Unknown]
  - Gingival bleeding [Unknown]
  - Weight decreased [Unknown]
  - Drug dose omission [Unknown]
  - Epistaxis [Unknown]
  - Heart rate decreased [Unknown]
  - Hypersensitivity [Unknown]

NARRATIVE: CASE EVENT DATE: 201108
